FAERS Safety Report 10381043 (Version 1)
Quarter: 2014Q1

REPORT INFORMATION
  Report Type: Spontaneous
  Country: US (occurrence: None)
  Receive Date: 20140306
  Receipt Date: 20140306
  Transmission Date: 20141002
  Serious: Yes (Hospitalization, Other)
  Sender: FDA-Public Use
  Company Number: 163-21880-13020923

PATIENT
  Age: 86 Year
  Sex: Male
  Weight: 69.4 kg

DRUGS (4)
  1. REVLIMID (LENALIDOMIDE) (10 MILLIGRAM, CAPSULES) [Suspect]
     Indication: MYELODYSPLASTIC SYNDROME
     Route: 048
     Dates: start: 201211, end: 201302
  2. LASIX (FUROSEMIDE) [Concomitant]
  3. AMIODARONE [Concomitant]
  4. FOROMAX [Concomitant]

REACTIONS (3)
  - Haemoglobin decreased [None]
  - Rib fracture [None]
  - Loss of consciousness [None]
